FAERS Safety Report 19877118 (Version 2)
Quarter: 2021Q4

REPORT INFORMATION
  Report Type: Spontaneous
  Country: US (occurrence: US)
  Receive Date: 20210923
  Receipt Date: 20211007
  Transmission Date: 20220304
  Serious: Yes (Hospitalization, Other)
  Sender: FDA-Public Use
  Company Number: US-FARMAPROD-202109-1653

PATIENT
  Age: 68 Year
  Sex: Male

DRUGS (7)
  1. OXERVATE [Suspect]
     Active Substance: CENEGERMIN-BKBJ
     Indication: Keratitis
     Route: 047
     Dates: start: 20210907
  2. REFRESH P.M. [Concomitant]
     Active Substance: MINERAL OIL\PETROLATUM
     Dosage: 42.5-57.3%
  3. PREDNISONE [Concomitant]
     Active Substance: PREDNISONE
  4. MOXIFLOXACIN [Concomitant]
     Active Substance: MOXIFLOXACIN
  5. BASAGLAR [Concomitant]
     Active Substance: INSULIN GLARGINE
     Dosage: 100 U
  6. OFLOXACIN [Concomitant]
     Active Substance: OFLOXACIN
     Indication: Chelation therapy
     Route: 047
     Dates: start: 20210910
  7. PREDNISOLONE [Concomitant]
     Active Substance: PREDNISOLONE
     Indication: Corneal neovascularisation
     Dosage: DAILY
     Route: 047
     Dates: start: 20210902

REACTIONS (3)
  - Eye operation [Recovering/Resolving]
  - Muscular weakness [Unknown]
  - Gait disturbance [Unknown]

NARRATIVE: CASE EVENT DATE: 20210910
